FAERS Safety Report 5183001-8 (Version None)
Quarter: 2006Q4

REPORT INFORMATION
  Report Type: 
  Country: None (occurrence: None)
  Receive Date: 20061220
  Receipt Date: 20051201
  Transmission Date: 20070319
  Serious: No
  Sender: FDA-Public Use
  Company Number: US-GLAXOSMITHKLINE-A0584208A

PATIENT
  Age: 34 Year
  Sex: Female

DRUGS (2)
  1. EQUATE NTS 21MG [Suspect]
     Indication: EX-SMOKER
  2. EQUATE NTS 14MG [Suspect]
     Indication: EX-SMOKER
     Dates: start: 20051201, end: 20051201

REACTIONS (2)
  - MALAISE [None]
  - NAUSEA [None]
